FAERS Safety Report 9059852 (Version 1)
Quarter: 2013Q1

REPORT INFORMATION
  Report Type: Spontaneous
  Country: US (occurrence: None)
  Receive Date: 20130206
  Receipt Date: 20130206
  Transmission Date: 20140127
  Serious: No
  Sender: FDA-Public Use
  Company Number: None

PATIENT
  Age: 79 Year
  Sex: Male

DRUGS (1)
  1. LETAIRIS [Suspect]
     Indication: PULMONARY HYPERTENSION
     Dosage: 2 TO 3 WEEKS
     Route: 048

REACTIONS (7)
  - Lethargy [None]
  - Anaemia [None]
  - Asthenia [None]
  - Syncope [None]
  - Dizziness [None]
  - Fatigue [None]
  - Dyspnoea exertional [None]
